FAERS Safety Report 15801639 (Version 1)
Quarter: 2019Q1

REPORT INFORMATION
  Report Type: Spontaneous
  Country: US (occurrence: US)
  Receive Date: 20190109
  Receipt Date: 20190109
  Transmission Date: 20190417
  Serious: No
  Sender: FDA-Public Use
  Company Number: US-PFIZER INC-2019008178

PATIENT
  Age: 68 Year

DRUGS (4)
  1. TAMSULOSIN [Suspect]
     Active Substance: TAMSULOSIN
     Dosage: UNK
  2. TADALAFIL. [Suspect]
     Active Substance: TADALAFIL
     Dosage: UNK
  3. CYCLOSPORIN [Suspect]
     Active Substance: CYCLOSPORINE
     Dosage: UNK
  4. TACROLIMUS. [Suspect]
     Active Substance: TACROLIMUS
     Dosage: UNK

REACTIONS (1)
  - Drug hypersensitivity [Unknown]
